FAERS Safety Report 25203188 (Version 1)
Quarter: 2025Q2

REPORT INFORMATION
  Report Type: Spontaneous
  Country: US (occurrence: US)
  Receive Date: 20250416
  Receipt Date: 20250416
  Transmission Date: 20250716
  Serious: Yes (Hospitalization)
  Sender: SCILEX PHARMACEUTICALS
  Company Number: US-SCILEX PHARMACEUTICALS INC.-US-SOR-25-00090

PATIENT
  Age: 41 Year
  Sex: Male

DRUGS (1)
  1. LIDOCAINE [Suspect]
     Active Substance: LIDOCAINE
     Indication: Skin wound
     Route: 061

REACTIONS (4)
  - Status epilepticus [Unknown]
  - Bradycardia [Unknown]
  - Toxicity to various agents [Unknown]
  - Off label use [Unknown]
